FAERS Safety Report 9614057 (Version 1)
Quarter: 2013Q4

REPORT INFORMATION
  Report Type: Spontaneous
  Country: FR (occurrence: FR)
  Receive Date: 20131011
  Receipt Date: 20131011
  Transmission Date: 20140711
  Serious: Yes (Other)
  Sender: FDA-Public Use
  Company Number: FR-BIOGENIDEC-2013BI097940

PATIENT
  Sex: Female

DRUGS (1)
  1. TYSABRI [Suspect]
     Indication: MULTIPLE SCLEROSIS
     Route: 042

REACTIONS (7)
  - Hypoglycaemia [Unknown]
  - Loss of consciousness [Unknown]
  - Hypertension [Unknown]
  - Infusion site thrombosis [Unknown]
  - Palpitations [Unknown]
  - Headache [Unknown]
  - Vomiting [Unknown]
